FAERS Safety Report 16052809 (Version 2)
Quarter: 2019Q2

REPORT INFORMATION
  Report Type: Spontaneous
  Country: US (occurrence: US)
  Receive Date: 20190308
  Receipt Date: 20190507
  Transmission Date: 20190711
  Serious: Yes (Hospitalization)
  Sender: FDA-Public Use
  Company Number: US-ASTRAZENECA-2019SE37005

PATIENT
  Age: 27333 Day
  Sex: Female
  Weight: 122 kg

DRUGS (4)
  1. ATORVASTATIN [Concomitant]
     Active Substance: ATORVASTATIN
     Route: 048
  2. VENTOLIN [Concomitant]
     Active Substance: ALBUTEROL SULFATE
     Indication: PROPHYLAXIS
     Dosage: AS REQUIRED
     Route: 055
  3. INCRUSE ELLIPTA [Concomitant]
     Active Substance: UMECLIDINIUM BROMIDE
     Indication: CHRONIC OBSTRUCTIVE PULMONARY DISEASE
     Dosage: TWO TIMES A DAY
     Route: 055
  4. SYMBICORT [Suspect]
     Active Substance: BUDESONIDE\FORMOTEROL FUMARATE DIHYDRATE
     Indication: CHRONIC OBSTRUCTIVE PULMONARY DISEASE
     Dosage: 80/4.5 MCG, 2 PUFFS TWICE DAILY
     Route: 055

REACTIONS (15)
  - Blood cholesterol [Unknown]
  - Malaise [Unknown]
  - Tremor [Unknown]
  - Complication associated with device [Unknown]
  - Device use issue [Unknown]
  - Dyspnoea [Unknown]
  - Asthenia [Unknown]
  - Intentional product misuse [Unknown]
  - Device dispensing error [Unknown]
  - Off label use [Unknown]
  - Device issue [Unknown]
  - Medication error [Unknown]
  - Bronchitis [Unknown]
  - Hypertension [Unknown]
  - Product use in unapproved indication [Unknown]
